FAERS Safety Report 5476745-1 (Version None)
Quarter: 2007Q4

REPORT INFORMATION
  Report Type: 
  Country: None (occurrence: None)
  Receive Date: 20071003
  Receipt Date: 20071003
  Transmission Date: 20080405
  Serious: No
  Sender: FDA-Public Use
  Company Number: None

PATIENT
  Sex: Female
  Weight: 58.9676 kg

DRUGS (6)
  1. OXYCONTIN [Suspect]
     Indication: BACK PAIN
     Dosage: 40MG TWO Q12?
     Dates: start: 20070116
  2. OXYCONTIN [Suspect]
     Indication: NECK PAIN
     Dosage: 40MG TWO Q12?
     Dates: start: 20070116
  3. OXYCONTIN [Suspect]
     Indication: BACK PAIN
     Dosage: 40MG TWO Q12?
     Dates: start: 20070213
  4. OXYCONTIN [Suspect]
     Indication: NECK PAIN
     Dosage: 40MG TWO Q12?
     Dates: start: 20070213
  5. OXYCONTIN [Suspect]
     Indication: BACK PAIN
     Dosage: 40MG TWO Q12?
     Dates: start: 20070313
  6. OXYCONTIN [Suspect]
     Indication: NECK PAIN
     Dosage: 40MG TWO Q12?
     Dates: start: 20070313

REACTIONS (1)
  - DRUG EFFECT DECREASED [None]
